FAERS Safety Report 8352474-1 (Version None)
Quarter: 2012Q2

REPORT INFORMATION
  Report Type: 
  Country: None (occurrence: None)
  Receive Date: 20120511
  Receipt Date: 20120507
  Transmission Date: 20120825
  Serious: Yes (Other)
  Sender: FDA-Public Use
  Company Number: PHHY2012MX039627

PATIENT
  Age: 42 Year
  Sex: Female

DRUGS (3)
  1. FEMARA [Suspect]
     Indication: NEOPLASM MALIGNANT
     Dosage: 2.5 MG, DAILY
     Route: 048
     Dates: start: 20120301, end: 20120301
  2. ASPIRIN [Concomitant]
     Dosage: 1 DF, DAILY
     Dates: start: 20100101
  3. METICORTEN [Concomitant]
     Dosage: 0.5 DF, UNK
     Dates: start: 20100101

REACTIONS (1)
  - OVARIAN CYST [None]
